FAERS Safety Report 25498241 (Version 1)
Quarter: 2025Q3

REPORT INFORMATION
  Report Type: Spontaneous
  Country: EU (occurrence: EU)
  Receive Date: 20250701
  Receipt Date: 20250701
  Transmission Date: 20251020
  Serious: Yes (Hospitalization)
  Sender: AUROBINDO
  Company Number: EU-AUROBINDO-AUR-APL-2019-066016

PATIENT
  Age: 48 Year
  Sex: Female

DRUGS (7)
  1. MEROPENEM [Suspect]
     Active Substance: MEROPENEM
     Indication: Bacteraemia
     Dosage: 1 GRAM, 3 TIMES A DAY
     Route: 065
  2. CYTARABINE [Concomitant]
     Active Substance: CYTARABINE
     Indication: Acute myelomonocytic leukaemia
     Route: 042
  3. VANCOMYCIN [Concomitant]
     Active Substance: VANCOMYCIN
     Indication: Bacteraemia
     Dosage: 1 GRAM, TWO TIMES A DAY
     Route: 016
  4. IDARUBICIN [Concomitant]
     Active Substance: IDARUBICIN
     Indication: Acute myelomonocytic leukaemia
     Route: 042
  5. Norepinefrine [Concomitant]
     Indication: Blood pressure abnormal
     Route: 016
  6. CASPOFUNGIN [Concomitant]
     Active Substance: CASPOFUNGIN
     Indication: Bacteraemia
     Dosage: 50 MILLIGRAM, ONCE A DAY
     Route: 065
  7. CIPROFLOXACIN [Suspect]
     Active Substance: CIPROFLOXACIN
     Indication: Product used for unknown indication
     Dosage: 400 MILLIGRAM, TWO TIMES A DAY
     Route: 065

REACTIONS (1)
  - Drug ineffective [Unknown]
